FAERS Safety Report 14011579 (Version 1)
Quarter: 2017Q3

REPORT INFORMATION
  Report Type: Spontaneous
  Country: US (occurrence: US)
  Receive Date: 20170926
  Receipt Date: 20170926
  Transmission Date: 20171128
  Serious: Yes (Other)
  Sender: FDA-Public Use
  Company Number: None

PATIENT
  Age: 70 Year
  Sex: Male
  Weight: 99.79 kg

DRUGS (5)
  1. ATENELOL [Concomitant]
     Active Substance: ATENOLOL
  2. CAPECITABINE. [Suspect]
     Active Substance: CAPECITABINE
     Indication: BONE NEOPLASM
     Route: 048
     Dates: start: 20160708, end: 20170926
  3. CAPECITABINE. [Suspect]
     Active Substance: CAPECITABINE
     Indication: BREAST CANCER
     Route: 048
     Dates: start: 20160708, end: 20170926
  4. HERCEPTIN [Concomitant]
     Active Substance: TRASTUZUMAB
  5. PERJETA [Concomitant]
     Active Substance: PERTUZUMAB

REACTIONS (1)
  - Disease progression [None]

NARRATIVE: CASE EVENT DATE: 20170926
